FAERS Safety Report 6772028-8 (Version None)
Quarter: 2010Q2

REPORT INFORMATION
  Report Type: 
  Country: None (occurrence: None)
  Receive Date: 20100611
  Receipt Date: 20100601
  Transmission Date: 20101027
  Serious: Yes (Other)
  Sender: FDA-Public Use
  Company Number: DKLU1062689

PATIENT
  Age: 47 Month
  Sex: Female

DRUGS (13)
  1. ELSPAR [Suspect]
     Indication: B-CELL TYPE ACUTE LEUKAEMIA
  2. PREDNISONE TAB [Suspect]
     Indication: B-CELL TYPE ACUTE LEUKAEMIA
     Dosage: 1120 MG/M2 MILLIGRAM(S)/SQ. METER
  3. DEXAMETHASONE [Suspect]
     Indication: ACUTE LYMPHOCYTIC LEUKAEMIA
     Dosage: 870 MG/M2 MILLIGRAM(S) /SQ. METER
  4. DEXAMETHASONE [Suspect]
     Indication: B-CELL TYPE ACUTE LEUKAEMIA
     Dosage: 870 MG/M2 MILLIGRAM(S) /SQ. METER
  5. CYCLOPHOSPHAMIDE [Suspect]
     Indication: B-CELL TYPE ACUTE LEUKAEMIA
     Dosage: 4000 MG/M2 MILLIGRAM(S) /SQ. METER
  6. CYTARABINE [Suspect]
     Indication: B-CELL TYPE ACUTE LEUKAEMIA
     Dosage: 2100 MG/M2 MILLIGRAM(S) /SQ. METER
  7. DAUNO/DOXORUBICIN (DAUNORUBICIN) [Suspect]
     Indication: B-CELL TYPE ACUTE LEUKAEMIA
     Dosage: 240 MG/M2 MILLIGRAM(S) /SQ. METER
  8. METHOTREXATE [Suspect]
     Indication: B-CELL TYPE ACUTE LEUKAEMIA
     Dosage: 1200 MG/M2 MILLIGRAM(S) /SQ. METER, INTRAVENOUS
     Route: 042
  9. MERCAPTOPURINE [Suspect]
     Indication: B-CELL TYPE ACUTE LEUKAEMIA
     Dosage: 40980 MG/M2 MILLIGRAM(S) /SQ. METER
  10. VINCRISTINE [Suspect]
     Indication: B-CELL TYPE ACUTE LEUKAEMIA
     Dosage: 73.5 MG/M2 MILLIGRAM(S) /SQ. METER
  11. THIOGUANINE [Suspect]
     Indication: B-CELL TYPE ACUTE LEUKAEMIA
     Dosage: 1680 MG/M2 MILLIGRAM(S) /SQ. METER
  12. METHOTREXATE [Suspect]
     Indication: B-CELL TYPE ACUTE LEUKAEMIA
     Dosage: 20 DOSES, INTRATHECAL
     Route: 037
  13. CRANIAL RADIATION [Suspect]
     Indication: B-CELL TYPE ACUTE LEUKAEMIA
     Dosage: 9 FRACTIONS, RADATION

REACTIONS (4)
  - BONE PAIN [None]
  - FEBRILE NEUTROPENIA [None]
  - HAEMOGLOBIN ABNORMAL [None]
  - PLATELET COUNT DECREASED [None]
